FAERS Safety Report 9098589 (Version 1)
Quarter: 2013Q1

REPORT INFORMATION
  Report Type: Report from Study
  Country: US (occurrence: US)
  Receive Date: 20130213
  Receipt Date: 20130213
  Transmission Date: 20140127
  Serious: Yes (Death, Life-Threatening, Hospitalization)
  Sender: FDA-Public Use
  Company Number: US-MERCK-1302USA003279

PATIENT
  Age: 71 Year
  Sex: Male
  Weight: 73 kg

DRUGS (6)
  1. VORINOSTAT [Suspect]
     Indication: NON-SMALL CELL LUNG CANCER
     Dosage: DAYS - 2 TO +2
     Route: 048
     Dates: start: 20121218, end: 20121222
  2. VORINOSTAT [Suspect]
     Dosage: DAYS - 2 TO +2
     Route: 048
     Dates: start: 20130122, end: 20130126
  3. CARBOPLATIN [Suspect]
     Indication: NON-SMALL CELL LUNG CANCER
     Dosage: AUC: 6 MG/ML OVER 30 MINS ON DAY 0
     Route: 042
     Dates: start: 20121220, end: 20121220
  4. CARBOPLATIN [Suspect]
     Dosage: AUC: 6 MG/ML OVER 30 MINS ON DAY 0
     Route: 042
     Dates: start: 20130124
  5. PACLITAXEL [Suspect]
     Indication: NON-SMALL CELL LUNG CANCER
     Dosage: 200 MG/M2 OVER 3 HOURS ON DAY 0
     Route: 042
     Dates: start: 20121220, end: 20121220
  6. PACLITAXEL [Suspect]
     Dosage: 200 MG/M2 OVER 3 HOURS ON DAY 0
     Route: 042
     Dates: start: 20130124, end: 20130124

REACTIONS (5)
  - Sudden death [Fatal]
  - Hyperkalaemia [Fatal]
  - Neutrophil count decreased [Fatal]
  - Blood creatinine increased [Fatal]
  - Dehydration [Fatal]
